FAERS Safety Report 10521452 (Version 1)
Quarter: 2014Q4

REPORT INFORMATION
  Report Type: Spontaneous
  Country: US (occurrence: None)
  Receive Date: 20141014
  Receipt Date: 20141014
  Transmission Date: 20150528
  Serious: No
  Sender: FDA-Public Use
  Company Number: None

PATIENT
  Age: 57 Year
  Sex: Female

DRUGS (1)
  1. BOTOX [Suspect]
     Active Substance: ONABOTULINUMTOXINA
     Indication: MIGRAINE
     Route: 030
     Dates: start: 20140430

REACTIONS (4)
  - Fatigue [None]
  - Hypertension [None]
  - Malaise [None]
  - Headache [None]

NARRATIVE: CASE EVENT DATE: 20140605
